FAERS Safety Report 24180556 (Version 1)
Quarter: 2024Q3

REPORT INFORMATION
  Report Type: Spontaneous
  Country: US (occurrence: None)
  Receive Date: 20240805
  Receipt Date: 20240805
  Transmission Date: 20241016
  Serious: Yes (Hospitalization)
  Sender: Public
  Company Number: None

PATIENT
  Age: 70 Year
  Sex: Male
  Weight: 95 kg

DRUGS (2)
  1. TREMELIMUMAB [Suspect]
     Active Substance: TREMELIMUMAB
     Indication: Mesothelioma
     Route: 041
     Dates: start: 20240710
  2. DURVALUMAB [Suspect]
     Active Substance: DURVALUMAB
     Indication: Mesothelioma
     Route: 041
     Dates: start: 20240710

REACTIONS (2)
  - Oxygen saturation decreased [None]
  - Treatment delayed [None]

NARRATIVE: CASE EVENT DATE: 20240731
